FAERS Safety Report 5612227-1 (Version None)
Quarter: 2008Q1

REPORT INFORMATION
  Report Type: 
  Country: None (occurrence: None)
  Receive Date: 20080204
  Receipt Date: 20080123
  Transmission Date: 20080703
  Serious: Yes (Hospitalization, Other)
  Sender: FDA-Public Use
  Company Number: US-ROCHE-401581

PATIENT
  Age: 45 Year
  Sex: Female

DRUGS (4)
  1. PEGASYS [Suspect]
     Dosage: ROUTE REPORTED AS INJECTION.
     Route: 065
     Dates: start: 20050202, end: 20050330
  2. PEGASYS [Suspect]
     Dosage: THERAPY CONTINUED FOR 3 MONTHS
     Route: 065
  3. COPEGUS [Suspect]
     Indication: HEPATITIS C
     Route: 048
     Dates: start: 20050202, end: 20050330
  4. COPEGUS [Suspect]
     Dosage: THERAPY CONTINUED FOR 3 MONTHS
     Route: 048

REACTIONS (9)
  - ADVERSE REACTION [None]
  - ALOPECIA [None]
  - AUTOIMMUNE THYROIDITIS [None]
  - DRUG DEPENDENCE [None]
  - EYELID DISORDER [None]
  - NECK MASS [None]
  - STRESS [None]
  - VISION BLURRED [None]
  - VISUAL DISTURBANCE [None]
